FAERS Safety Report 9439419 (Version 4)
Quarter: 2014Q2

REPORT INFORMATION
  Report Type: Report from Study
  Country: US (occurrence: US)
  Receive Date: 20130805
  Receipt Date: 20140530
  Transmission Date: 20141212
  Serious: Yes (Hospitalization)
  Sender: FDA-Public Use
  Company Number: US-BIOGENIDEC-2013BI070019

PATIENT
  Age: 57 Year
  Sex: Female

DRUGS (2)
  1. TYSABRI [Suspect]
     Indication: MULTIPLE SCLEROSIS
     Route: 042
     Dates: start: 20100105, end: 20120117
  2. TYSABRI [Suspect]
     Indication: MULTIPLE SCLEROSIS
     Route: 042
     Dates: start: 20130401, end: 201404

REACTIONS (11)
  - Hypersensitivity [Recovered/Resolved]
  - Post lumbar puncture syndrome [Recovered/Resolved]
  - Cerebrospinal fluid leakage [Recovered/Resolved]
  - Procedural complication [Recovered/Resolved]
  - Spinal laminectomy [Unknown]
  - Musculoskeletal stiffness [Recovered/Resolved]
  - Muscle spasticity [Recovered/Resolved]
  - Muscle spasms [Recovered/Resolved]
  - Dystonia [Unknown]
  - Insomnia [Recovered/Resolved]
  - Rash pruritic [Recovered/Resolved]
